FAERS Safety Report 8327930-2 (Version None)
Quarter: 2012Q2

REPORT INFORMATION
  Report Type: 
  Country: None (occurrence: None)
  Receive Date: 20120502
  Receipt Date: 20120418
  Transmission Date: 20120825
  Serious: Yes (Death, Hospitalization, Other)
  Sender: FDA-Public Use
  Company Number: US-BAYER-2011-079018

PATIENT
  Age: 62 Year
  Sex: Female
  Weight: 42.6 kg

DRUGS (9)
  1. SARGRAMOSTIM [Suspect]
     Dosage: CYCLE 4: 250 ?G, QD
     Route: 058
     Dates: start: 20110901, end: 20110915
  2. MDX-010 [Suspect]
     Dosage: UNK
     Dates: end: 20111122
  3. SARGRAMOSTIM [Suspect]
     Indication: MALIGNANT MELANOMA
     Dosage: CYCLE 1: 250 ?G, QD
     Route: 058
     Dates: start: 20110630
  4. SARGRAMOSTIM [Suspect]
     Dosage: CYCLE 3: 250 ?G, QD
     Route: 058
     Dates: start: 20110811, end: 20110824
  5. MDX-010 [Suspect]
     Dosage: CYCLE 3: 10 MG/KG, QD
     Route: 042
     Dates: start: 20110811
  6. MDX-010 [Suspect]
     Dosage: CYCLE 2: 10 MG/KG, QD
     Route: 042
     Dates: start: 20110721
  7. SARGRAMOSTIM [Suspect]
     Dosage: CYCLE 2: 250 ?G, QD
     Route: 058
  8. SARGRAMOSTIM [Suspect]
     Dosage: UNK
     Dates: end: 20120208
  9. MDX-010 [Suspect]
     Indication: MALIGNANT MELANOMA
     Dosage: CYCLE 1: 10 MG/KG, QD
     Route: 042
     Dates: start: 20110630, end: 20110811

REACTIONS (4)
  - PULMONARY EMBOLISM [None]
  - BLOOD CREATINE PHOSPHOKINASE INCREASED [None]
  - EMBOLISM [None]
  - LIPASE INCREASED [None]
